FAERS Safety Report 13381747 (Version 1)
Quarter: 2017Q1

REPORT INFORMATION
  Report Type: Spontaneous
  Country: US (occurrence: US)
  Receive Date: 20170329
  Receipt Date: 20170329
  Transmission Date: 20170429
  Serious: No
  Sender: FDA-Public Use
  Company Number: None

PATIENT
  Age: 76 Year
  Sex: Female
  Weight: 72 kg

DRUGS (9)
  1. BABY ASPIRIN [Concomitant]
     Active Substance: ASPIRIN
  2. HCTZ [Concomitant]
     Active Substance: HYDROCHLOROTHIAZIDE
  3. ESTRODIAL PATCH [Concomitant]
  4. SYNTHROID [Concomitant]
     Active Substance: LEVOTHYROXINE SODIUM
  5. MULTIVITAMIN MULTIMINERALS [Concomitant]
     Active Substance: MINERALS\VITAMINS
  6. ALLEGRA [Concomitant]
     Active Substance: FEXOFENADINE HYDROCHLORIDE
  7. AVASTIN [Suspect]
     Active Substance: BEVACIZUMAB
     Indication: NEOVASCULAR AGE-RELATED MACULAR DEGENERATION
     Route: 047
     Dates: start: 20170227, end: 20170227
  8. COQ10 [Concomitant]
     Active Substance: UBIDECARENONE
  9. ADVIL [Concomitant]
     Active Substance: IBUPROFEN

REACTIONS (6)
  - Vitreous floaters [None]
  - Photophobia [None]
  - Eye pain [None]
  - Chills [None]
  - Ocular hyperaemia [None]
  - Feeling abnormal [None]

NARRATIVE: CASE EVENT DATE: 20170227
